FAERS Safety Report 18763757 (Version 81)
Quarter: 2023Q1

REPORT INFORMATION
  Report Type: Report from Study
  Country: IE (occurrence: IE)
  Receive Date: 20210120
  Receipt Date: 20230329
  Transmission Date: 20230417
  Serious: Yes (Hospitalization, Other)
  Sender: FDA-Public Use
  Company Number: IE-SHIRE-IE202030432

PATIENT
  Age: 15 Year
  Sex: Male

DRUGS (55)
  1. IDURSULFASE [Suspect]
     Active Substance: IDURSULFASE
     Indication: Mucopolysaccharidosis II
     Dosage: 24 GRAM, 1/WEEK
     Route: 042
     Dates: start: 20111008
  2. IDURSULFASE [Suspect]
     Active Substance: IDURSULFASE
     Dosage: 24 MILLIGRAM, Q2WEEKS
     Route: 042
     Dates: start: 20111028
  3. IDURSULFASE [Suspect]
     Active Substance: IDURSULFASE
     Dosage: 30 MILLIGRAM, Q2WEEKS
     Route: 042
     Dates: start: 20111028
  4. IDURSULFASE [Suspect]
     Active Substance: IDURSULFASE
     Dosage: 30 MILLIGRAM, Q2WEEKS
     Route: 042
     Dates: start: 20111028
  5. IDURSULFASE [Suspect]
     Active Substance: IDURSULFASE
     Dosage: 24 MILLIGRAM, Q2WEEKS
     Route: 042
     Dates: start: 20111028
  6. IDURSULFASE [Suspect]
     Active Substance: IDURSULFASE
     Dosage: 30 MILLIGRAM, 1/WEEK
     Route: 042
     Dates: start: 20111028
  7. IDURSULFASE [Suspect]
     Active Substance: IDURSULFASE
     Dosage: 30 MILLIGRAM, 1/WEEK
     Route: 042
     Dates: start: 20111028
  8. IDURSULFASE [Suspect]
     Active Substance: IDURSULFASE
     Dosage: 24 GRAM, 1/WEEK
     Route: 042
     Dates: start: 20111028
  9. IDURSULFASE [Suspect]
     Active Substance: IDURSULFASE
     Dosage: 24 GRAM, 1/WEEK
     Route: 042
     Dates: start: 20111028
  10. IDURSULFASE [Suspect]
     Active Substance: IDURSULFASE
     Dosage: 24 GRAM, 1/WEEK
     Route: 042
     Dates: start: 20111028
  11. IDURSULFASE [Suspect]
     Active Substance: IDURSULFASE
     Dosage: 24 MILLIGRAM, Q2WEEKS
     Route: 042
     Dates: start: 20111028
  12. IDURSULFASE [Suspect]
     Active Substance: IDURSULFASE
     Dosage: 30 GRAM, 1/WEEK
     Route: 042
     Dates: start: 20111028
  13. IDURSULFASE [Suspect]
     Active Substance: IDURSULFASE
     Dosage: 30 MILLIGRAM, 1/WEEK
     Route: 042
     Dates: start: 20111028
  14. IDURSULFASE [Suspect]
     Active Substance: IDURSULFASE
     Dosage: 30 MILLIGRAM, Q2WEEKS
     Route: 042
     Dates: start: 20111028
  15. IDURSULFASE [Suspect]
     Active Substance: IDURSULFASE
     Dosage: 30 MILLIGRAM, Q2WEEKS
     Route: 042
     Dates: start: 20111028
  16. IDURSULFASE [Suspect]
     Active Substance: IDURSULFASE
     Dosage: 24 MILLIGRAM, Q2WEEKS
     Route: 042
     Dates: start: 20111028
  17. IDURSULFASE [Suspect]
     Active Substance: IDURSULFASE
     Dosage: 24 MILLIGRAM, Q2WEEKS
     Route: 042
     Dates: start: 20111028
  18. IDURSULFASE [Suspect]
     Active Substance: IDURSULFASE
     Dosage: 30 MILLIGRAM, 1/WEEK
     Route: 042
     Dates: start: 20111028
  19. IDURSULFASE [Suspect]
     Active Substance: IDURSULFASE
     Dosage: 30 MILLIGRAM, Q2WEEKS
     Route: 042
     Dates: start: 20111028
  20. IDURSULFASE [Suspect]
     Active Substance: IDURSULFASE
     Dosage: 24 MILLIGRAM, 1/WEEK
     Route: 042
     Dates: start: 20111028
  21. IDURSULFASE [Suspect]
     Active Substance: IDURSULFASE
     Dosage: 30 MILLIGRAM, Q2WEEKS
     Route: 042
     Dates: start: 20111028
  22. IDURSULFASE [Suspect]
     Active Substance: IDURSULFASE
     Dosage: 24 MILLIGRAM, Q2WEEKS
     Route: 042
     Dates: start: 20111028
  23. IDURSULFASE [Suspect]
     Active Substance: IDURSULFASE
     Dosage: 24 MILLIGRAM, Q2WEEKS
     Route: 042
     Dates: start: 20111028
  24. IDURSULFASE [Suspect]
     Active Substance: IDURSULFASE
     Dosage: 24 MILLIGRAM, Q2WEEKS
     Route: 042
     Dates: start: 20111028
  25. IDURSULFASE [Suspect]
     Active Substance: IDURSULFASE
     Dosage: 30 MILLIGRAM, Q2WEEKS
     Route: 042
     Dates: start: 20111028
  26. IDURSULFASE [Suspect]
     Active Substance: IDURSULFASE
     Dosage: 24 MILLIGRAM, 1/WEEK
     Route: 042
     Dates: start: 20111028
  27. IDURSULFASE [Suspect]
     Active Substance: IDURSULFASE
     Dosage: 30 MILLIGRAM, 2/WEEK
     Route: 042
     Dates: start: 20111028
  28. IDURSULFASE [Suspect]
     Active Substance: IDURSULFASE
     Dosage: 24 MILLIGRAM, Q2WEEKS
     Route: 042
     Dates: start: 20111028
  29. IDURSULFASE [Suspect]
     Active Substance: IDURSULFASE
     Dosage: 30 MILLIGRAM, Q2WEEKS
     Route: 042
     Dates: start: 20111028
  30. IDURSULFASE [Suspect]
     Active Substance: IDURSULFASE
     Dosage: 24 MILLIGRAM, Q2WEEKS
     Route: 042
     Dates: start: 20150424
  31. IDURSULFASE [Suspect]
     Active Substance: IDURSULFASE
     Dosage: 30 MILLIGRAM, Q2WEEKS
     Route: 042
     Dates: start: 20210914
  32. IDURSULFASE [Suspect]
     Active Substance: IDURSULFASE
     Dosage: 30 MILLIGRAM, Q2WEEKS
     Route: 042
     Dates: start: 20211019
  33. IDURSULFASE [Suspect]
     Active Substance: IDURSULFASE
     Dosage: 30 MILLIGRAM, Q2WEEKS
     Route: 042
     Dates: start: 20211026
  34. IDURSULFASE [Suspect]
     Active Substance: IDURSULFASE
     Dosage: 30 MILLIGRAM, Q2WEEKS
     Route: 042
     Dates: start: 20211102
  35. IDURSULFASE [Suspect]
     Active Substance: IDURSULFASE
     Dosage: 30 MILLIGRAM, Q2WEEKS
     Route: 042
     Dates: start: 20211109
  36. IDURSULFASE [Suspect]
     Active Substance: IDURSULFASE
     Dosage: 30 MILLIGRAM, Q2WEEKS
     Route: 042
     Dates: start: 20211116
  37. IDURSULFASE [Suspect]
     Active Substance: IDURSULFASE
     Dosage: 30 MILLIGRAM, Q2WEEKS
     Route: 042
     Dates: start: 20211123
  38. IDURSULFASE [Suspect]
     Active Substance: IDURSULFASE
     Dosage: 30 MILLIGRAM, Q2WEEKS
     Route: 042
     Dates: start: 20220201
  39. IDURSULFASE [Suspect]
     Active Substance: IDURSULFASE
     Dosage: 30 MILLIGRAM, Q2WEEKS
     Route: 042
  40. SINGULAIR [Concomitant]
     Active Substance: MONTELUKAST SODIUM
     Dosage: 10 MILLIGRAM
     Route: 050
  41. ALBUTEROL [Concomitant]
     Active Substance: ALBUTEROL
     Dosage: 2.5 MILLIGRAM, QD
     Route: 050
  42. MELATONIN [Concomitant]
     Active Substance: MELATONIN
     Dosage: 10 MILLIGRAM, QD
     Route: 050
  43. HEPARIN SODIUM [Concomitant]
     Active Substance: HEPARIN SODIUM
     Dosage: 10 INTERNATIONAL UNIT, 1/WEEK
     Route: 050
  44. CETIRIZINE HYDROCHLORIDE [Concomitant]
     Active Substance: CETIRIZINE HYDROCHLORIDE
     Dosage: 10 MILLIGRAM
     Route: 050
  45. EMLA [Concomitant]
     Active Substance: LIDOCAINE\PRILOCAINE
     Dosage: UNK
     Route: 061
  46. EXPUTEX [Concomitant]
     Dosage: 5 MILLILITER, TID
     Route: 050
  47. SALINE [Concomitant]
     Active Substance: SODIUM CHLORIDE
     Dosage: 2 MILLILITER
     Route: 050
  48. DIFFERIN [Concomitant]
     Active Substance: ADAPALENE
     Dosage: 1 MILLIGRAM, QD
     Route: 050
  49. PREDNESOL [Concomitant]
     Dosage: 30 MILLIGRAM, QD
     Route: 050
  50. BUDESONIDE [Concomitant]
     Active Substance: BUDESONIDE
     Dosage: 0.5 MILLIGRAM, QD
     Route: 050
  51. TRIMETHOPRIM [Concomitant]
     Active Substance: TRIMETHOPRIM
     Dosage: 10 MILLILITER, BID
     Route: 050
  52. ZOFRAN [Concomitant]
     Active Substance: ONDANSETRON HYDROCHLORIDE
     Dosage: 4 MILLIGRAM
     Route: 050
  53. EPIDUO [Concomitant]
     Active Substance: ADAPALENE\BENZOYL PEROXIDE
     Dosage: 1 DOSAGE FORM, QD
     Route: 050
  54. MOVICOL [Concomitant]
     Active Substance: POLYETHYLENE GLYCOL 3350\POTASSIUM CHLORIDE\SODIUM BICARBONATE\SODIUM CHLORIDE
     Dosage: 1 INTERNATIONAL UNIT, BID
     Route: 050
  55. CLARITHROMYCIN [Concomitant]
     Active Substance: CLARITHROMYCIN
     Dosage: 500 MILLIGRAM, BID
     Route: 050

REACTIONS (42)
  - Lower respiratory tract infection [Recovering/Resolving]
  - Constipation [Recovering/Resolving]
  - Poor venous access [Recovered/Resolved]
  - Tibia fracture [Recovered/Resolved]
  - Infected cyst [Recovering/Resolving]
  - Upper respiratory tract infection [Recovering/Resolving]
  - Bradycardia [Unknown]
  - Sputum discoloured [Not Recovered/Not Resolved]
  - Rhinorrhoea [Recovered/Resolved]
  - Gastroenteritis viral [Recovered/Resolved]
  - Posture abnormal [Recovered/Resolved]
  - Gait disturbance [Recovered/Resolved]
  - Catheter site haemorrhage [Recovering/Resolving]
  - Incontinence [Not Recovered/Not Resolved]
  - Retching [Recovered/Resolved]
  - Pyrexia [Recovered/Resolved]
  - Cough [Recovering/Resolving]
  - Wheezing [Not Recovered/Not Resolved]
  - Arthralgia [Recovered/Resolved]
  - Pallor [Unknown]
  - Nasopharyngitis [Unknown]
  - Sneezing [Unknown]
  - COVID-19 [Recovered/Resolved]
  - Seasonal allergy [Not Recovered/Not Resolved]
  - Nasal congestion [Not Recovered/Not Resolved]
  - Oropharyngeal pain [Recovering/Resolving]
  - Obstruction [Recovering/Resolving]
  - Injury associated with device [Not Recovered/Not Resolved]
  - Depressed mood [Recovered/Resolved]
  - Somnolence [Recovered/Resolved]
  - Body temperature abnormal [Recovered/Resolved]
  - Respiratory tract infection [Recovering/Resolving]
  - Sluggishness [Recovered/Resolved]
  - Anxiety [Recovered/Resolved]
  - Skin discolouration [Recovered/Resolved]
  - Malaise [Recovered/Resolved]
  - Emotional distress [Not Recovered/Not Resolved]
  - Infusion site swelling [Recovering/Resolving]
  - Product supply issue [Recovered/Resolved]
  - Procedural complication [Not Recovered/Not Resolved]
  - Inappropriate schedule of product administration [Unknown]
  - Product dose omission issue [Recovered/Resolved]

NARRATIVE: CASE EVENT DATE: 20200904
